FAERS Safety Report 8043405-2 (Version None)
Quarter: 2012Q1

REPORT INFORMATION
  Report Type: 
  Country: None (occurrence: None)
  Receive Date: 20120112
  Receipt Date: 20120106
  Transmission Date: 20120608
  Serious: Yes (Other)
  Sender: FDA-Public Use
  Company Number: GXBR2012US000457

PATIENT
  Sex: Female

DRUGS (12)
  1. DEXEDRINE [Concomitant]
     Indication: ATTENTION DEFICIT/HYPERACTIVITY DISORDER
     Dosage: 15 MG, QD
     Route: 048
  2. GUANFACINE HYDROCHLORIDE [Concomitant]
     Indication: ATTENTION DEFICIT/HYPERACTIVITY DISORDER
     Dosage: 2 MG, QD
     Route: 048
  3. CLONIDINE [Concomitant]
     Indication: RESTLESSNESS
     Dosage: 0.1 MG, QD
     Route: 048
  4. OMNITROPE [Suspect]
     Indication: GROWTH HORMONE DEFICIENCY
     Dosage: 1.7 MG, QD
     Dates: start: 20110901
  5. DEPAKOTE [Concomitant]
     Indication: AFFECTIVE DISORDER
     Dosage: 250 MG, QD
     Route: 048
  6. XYZAL [Concomitant]
     Indication: HYPERSENSITIVITY
     Dosage: 5 MG, QD
     Route: 048
  7. CALCIUM W/VITAMIN D NOS [Concomitant]
     Dosage: 1200 MG, QD
     Route: 048
  8. PROZAC [Concomitant]
     Indication: ABNORMAL BEHAVIOUR
     Dosage: 50 MG, QD
     Route: 048
  9. IRON [Concomitant]
     Dosage: 27 MG, UNK
     Route: 048
  10. LAMICTAL [Concomitant]
     Indication: CONVULSION
     Dosage: 125 MG QAM, 75 MG QPM
     Route: 048
  11. MELATONIN [Concomitant]
     Indication: SLEEP DISORDER
     Dosage: 10 MG, QD
     Route: 048
  12. NEXIUM [Concomitant]
     Indication: GASTROOESOPHAGEAL REFLUX DISEASE
     Dosage: 20 MG, QD
     Route: 048

REACTIONS (3)
  - LOSS OF CONSCIOUSNESS [None]
  - THIRST [None]
  - URINARY INCONTINENCE [None]
